FAERS Safety Report 6014877-X (Version None)
Quarter: 2008Q4

REPORT INFORMATION
  Report Type: 
  Country: None (occurrence: None)
  Receive Date: 20081219
  Receipt Date: 20081205
  Transmission Date: 20090506
  Serious: No
  Sender: FDA-Public Use
  Company Number: US-B.I. PHARMACEUTICALS,INC./RIDGEFIELD-2008-BP-18359BP

PATIENT
  Age: 56 Year
  Sex: Male

DRUGS (3)
  1. FLOMAX [Suspect]
     Indication: BENIGN PROSTATIC HYPERPLASIA
     Dosage: .4MG
     Route: 048
     Dates: start: 20081101
  2. AVODART [Concomitant]
     Indication: BENIGN PROSTATIC HYPERPLASIA
  3. DETROL [Concomitant]
     Indication: MICTURITION DISORDER

REACTIONS (1)
  - DRUG INEFFECTIVE [None]
